FAERS Safety Report 8799067 (Version 2)
Quarter: 2013Q2

REPORT INFORMATION
  Report Type: Spontaneous
  Country: US (occurrence: US)
  Receive Date: 20120920
  Receipt Date: 20130513
  Transmission Date: 20140414
  Serious: No
  Sender: FDA-Public Use
  Company Number: US-ASTRAZENECA-2011SE58019

PATIENT
  Age: 37 Year
  Sex: Male
  Weight: 74.8 kg

DRUGS (17)
  1. ZESTRIL [Suspect]
     Route: 048
  2. SEROQUEL XR [Suspect]
     Indication: PSYCHOTIC DISORDER
     Route: 048
  3. SEROQUEL XR [Suspect]
     Indication: PANIC ATTACK
     Route: 048
  4. SEROQUEL XR [Suspect]
     Indication: ANXIETY
     Route: 048
  5. SEROQUEL XR [Suspect]
     Indication: DEPRESSION
     Route: 048
  6. SEROQUEL XR [Suspect]
     Indication: SLEEP DISORDER
     Route: 048
  7. SEROQUEL XR [Suspect]
     Indication: PSYCHOTIC DISORDER
     Dosage: 200MG , 1 TABLET IN AM, 1 IN AFTERNOON, 2 AT THE TIME OF SLEEP
     Route: 048
     Dates: start: 201301
  8. SEROQUEL XR [Suspect]
     Indication: PANIC ATTACK
     Dosage: 200MG , 1 TABLET IN AM, 1 IN AFTERNOON, 2 AT THE TIME OF SLEEP
     Route: 048
     Dates: start: 201301
  9. SEROQUEL XR [Suspect]
     Indication: ANXIETY
     Dosage: 200MG , 1 TABLET IN AM, 1 IN AFTERNOON, 2 AT THE TIME OF SLEEP
     Route: 048
     Dates: start: 201301
  10. SEROQUEL XR [Suspect]
     Indication: DEPRESSION
     Dosage: 200MG , 1 TABLET IN AM, 1 IN AFTERNOON, 2 AT THE TIME OF SLEEP
     Route: 048
     Dates: start: 201301
  11. SEROQUEL XR [Suspect]
     Indication: SLEEP DISORDER
     Dosage: 200MG , 1 TABLET IN AM, 1 IN AFTERNOON, 2 AT THE TIME OF SLEEP
     Route: 048
     Dates: start: 201301
  12. XANAX [Suspect]
     Route: 065
  13. NEUROTIN [Concomitant]
  14. MIRAPEX [Concomitant]
     Indication: RESTLESS LEGS SYNDROME
  15. ATAVAN [Concomitant]
  16. TRAZADONE [Concomitant]
     Indication: SLEEP DISORDER
     Dosage: HS
     Route: 048
  17. VISTARIL [Concomitant]
     Indication: ANXIETY
     Dosage: TID
     Route: 048

REACTIONS (13)
  - Anxiety [Unknown]
  - Back pain [Unknown]
  - Bipolar disorder [Unknown]
  - Pain in extremity [Unknown]
  - Mania [Unknown]
  - Panic attack [Unknown]
  - Restlessness [Unknown]
  - Confusional state [Unknown]
  - Feeling abnormal [Unknown]
  - Dreamy state [Unknown]
  - Abnormal dreams [Unknown]
  - Off label use [Unknown]
  - Drug dose omission [Unknown]
